FAERS Safety Report 10206121 (Version 5)
Quarter: 2016Q4

REPORT INFORMATION
  Report Type: Spontaneous
  Country: US (occurrence: US)
  Receive Date: 20140530
  Receipt Date: 20161202
  Transmission Date: 20170206
  Serious: Yes (Hospitalization)
  Sender: FDA-Public Use
  Company Number: US-PFIZER INC-2014148237

PATIENT
  Age: 49 Year
  Sex: Female

DRUGS (26)
  1. LYRICA [Suspect]
     Active Substance: PREGABALIN
     Indication: FIBROMYALGIA
     Dosage: 100 MG, 2X/DAY
     Route: 048
     Dates: start: 20130904
  2. CYMBALTA [Concomitant]
     Active Substance: DULOXETINE HYDROCHLORIDE
     Indication: DEPRESSION
     Dosage: 30 MG, 3X/DAY
  3. LYRICA [Suspect]
     Active Substance: PREGABALIN
     Indication: SYSTEMIC LUPUS ERYTHEMATOSUS
     Dosage: 100 MG, 3X/DAY
     Route: 048
     Dates: start: 20160322
  4. PROTONIX [Concomitant]
     Active Substance: PANTOPRAZOLE SODIUM
     Indication: ABDOMINAL DISCOMFORT
     Dosage: 40 MG, 1X/DAY
     Route: 048
     Dates: start: 20160531
  5. TRAZODONE [Concomitant]
     Active Substance: TRAZODONE HYDROCHLORIDE
     Indication: SLEEP DISORDER
     Dosage: 150 MG, 2X/DAY
     Route: 048
     Dates: start: 20160531
  6. LIPITOR [Concomitant]
     Active Substance: ATORVASTATIN CALCIUM
     Indication: BLOOD CHOLESTEROL
     Dosage: 10 MG, 1X/DAY
  7. ADVAIR HFA [Concomitant]
     Active Substance: FLUTICASONE PROPIONATE\SALMETEROL XINAFOATE
     Indication: LUNG DISORDER
     Dosage: UNK UNK, DAILY, (1 PUFF P/DAY)
     Route: 055
  8. NALTREXONE [Concomitant]
     Active Substance: NALTREXONE
     Indication: PAIN
     Dosage: 4 MG, DAILY (QD, 30 DAYS)
     Dates: start: 20160906
  9. IMITREX [Concomitant]
     Active Substance: SUMATRIPTAN SUCCINATE
     Dosage: 100 MG, AS NEEDED (AS NEEDED, 30 DAYS)
     Route: 048
     Dates: start: 20160202
  10. ALBUTEROL SULFATE. [Concomitant]
     Active Substance: ALBUTEROL SULFATE
     Indication: WHEEZING
     Dosage: 1 ML, AS NEEDED (1 MILLILITER(S) INH Q4HRS PRN AS NEEDED WHEEZE)
     Route: 045
     Dates: start: 20160202
  11. DICLOFENAC SODIUM. [Concomitant]
     Active Substance: DICLOFENAC SODIUM
     Indication: INFLAMMATION
     Dosage: 75 MG, 2X/DAY
     Route: 048
     Dates: start: 20160531
  12. CYMBALTA [Concomitant]
     Active Substance: DULOXETINE HYDROCHLORIDE
     Indication: ANXIETY
     Dosage: 30 MG, 4X/DAY (90 DAYS, 1 REFILL)
     Route: 048
     Dates: start: 20160719
  13. PLAQUENIL [Concomitant]
     Active Substance: HYDROXYCHLOROQUINE SULFATE
     Indication: SYSTEMIC LUPUS ERYTHEMATOSUS
     Dosage: 200 MG, 2X/DAY (PO BID, 90 DAYS)
     Route: 048
     Dates: start: 20160531
  14. LEVOCETIRIZINE [Concomitant]
     Active Substance: LEVOCETIRIZINE
     Dosage: 5 MG, 1X/DAY (QHS)
     Route: 048
     Dates: start: 20160202
  15. ATORVASTATIN [Concomitant]
     Active Substance: ATORVASTATIN
     Indication: BLOOD CHOLESTEROL
     Dosage: 10 MG, 1X/DAY (QHS)
     Route: 048
     Dates: start: 20160803, end: 20161001
  16. DICLOFENAC SODIUM. [Concomitant]
     Active Substance: DICLOFENAC SODIUM
     Dosage: 75 MG, 3X/DAY
  17. PROAIR HFA [Concomitant]
     Active Substance: ALBUTEROL SULFATE
     Indication: LUNG DISORDER
     Dosage: UNK UNK, DAILY (1 PUFF X 2 P/DAY)
     Route: 055
  18. FLONASE [Concomitant]
     Active Substance: FLUTICASONE PROPIONATE
     Dosage: UNK, (1 PUFF EA)
     Route: 045
  19. CETIRIZINE [Concomitant]
     Active Substance: CETIRIZINE HYDROCHLORIDE
     Indication: HYPERSENSITIVITY
     Dosage: 10 MG, 1X/DAY
     Route: 048
     Dates: start: 20160531
  20. BUSPIRONE [Concomitant]
     Active Substance: BUSPIRONE HYDROCHLORIDE
     Indication: ANXIETY
     Dosage: 10 MG, AS NEEDED (TID PRN)
     Route: 048
     Dates: start: 20160906
  21. BUSPIRONE [Concomitant]
     Active Substance: BUSPIRONE HYDROCHLORIDE
     Dosage: 10 MG, 2X/DAY
  22. ZANAFLEX [Concomitant]
     Active Substance: TIZANIDINE HYDROCHLORIDE
     Indication: MUSCLE RELAXANT THERAPY
     Dosage: 4 MG, 1X/DAY
  23. ZOLPIDEM [Concomitant]
     Active Substance: ZOLPIDEM\ZOLPIDEM TARTRATE
     Indication: SLEEP DISORDER
     Dosage: 10 MG, 1X/DAY
  24. ARTHROTEC [Concomitant]
     Active Substance: DICLOFENAC SODIUM\MISOPROSTOL
     Indication: INFLAMMATION
     Dosage: 1 DF, 3X/DAY [DICLOFENAC SODIUM 75 MG] / [MISOPROSTOL 200 MCG]
     Route: 048
  25. FLONASE [Concomitant]
     Active Substance: FLUTICASONE PROPIONATE
     Indication: HYPERSENSITIVITY
     Dosage: UNK, 1X/DAY (2 SPRAY NASAL QD)
     Route: 045
     Dates: start: 20160718
  26. AMBIEN [Concomitant]
     Active Substance: ZOLPIDEM TARTRATE
     Dosage: 10 MG, 1X/DAY (QHS)
     Route: 048
     Dates: start: 20160718

REACTIONS (1)
  - Malaise [Unknown]
